FAERS Safety Report 11401151 (Version 2)
Quarter: 2015Q3

REPORT INFORMATION
  Report Type: Spontaneous
  Country: US (occurrence: US)
  Receive Date: 20150820
  Receipt Date: 20150820
  Transmission Date: 20151125
  Serious: Yes (Other)
  Sender: FDA-Public Use
  Company Number: US-GLAXOSMITHKLINE-US2015117311

PATIENT
  Age: 63 Year
  Sex: Female

DRUGS (19)
  1. KALYDECO [Suspect]
     Active Substance: IVACAFTOR
     Indication: CYSTIC FIBROSIS
     Dosage: UNK
     Dates: start: 201507
  2. CALCIUM CITRATE [Concomitant]
     Active Substance: CALCIUM CITRATE
  3. EPIPEN [Concomitant]
     Active Substance: EPINEPHRINE
  4. ADVAIR DISKUS [Suspect]
     Active Substance: FLUTICASONE PROPIONATE\SALMETEROL XINAFOATE
     Indication: CYSTIC FIBROSIS
  5. FLEXERIL [Concomitant]
     Active Substance: CYCLOBENZAPRINE HYDROCHLORIDE
  6. PREDNISONE. [Suspect]
     Active Substance: PREDNISONE
     Indication: CYSTIC FIBROSIS
     Dosage: 70 MG, UNK
  7. CREON 24 [Concomitant]
     Active Substance: AMYLASE\LIPASE\PROTEASE
  8. VITAMIN D [Concomitant]
     Active Substance: CHOLECALCIFEROL
  9. VENTOLIN HFA [Suspect]
     Active Substance: ALBUTEROL SULFATE
     Indication: CYSTIC FIBROSIS
  10. VENTOLIN HFA [Suspect]
     Active Substance: ALBUTEROL SULFATE
     Indication: BRONCHIECTASIS
  11. NEXIUM [Concomitant]
     Active Substance: ESOMEPRAZOLE MAGNESIUM
  12. SODIUM CHLORIDE. [Concomitant]
     Active Substance: SODIUM CHLORIDE
  13. VENTOLIN HFA [Suspect]
     Active Substance: ALBUTEROL SULFATE
     Indication: ASTHMA
     Dosage: 1 PUFF(S), PRN
     Dates: start: 200810
  14. ADVIL [Concomitant]
     Active Substance: IBUPROFEN
  15. ADVAIR DISKUS [Suspect]
     Active Substance: FLUTICASONE PROPIONATE\SALMETEROL XINAFOATE
     Indication: ASTHMA
     Dosage: 1 PUFF(S), BID
     Dates: start: 200810
  16. OXYGEN. [Concomitant]
     Active Substance: OXYGEN
  17. PREDNISONE. [Suspect]
     Active Substance: PREDNISONE
     Dosage: 20 MG, UNK
  18. ALBUTEROL NEBULIZER [Concomitant]
     Active Substance: ALBUTEROL
  19. PULMOZYME [Concomitant]
     Active Substance: DORNASE ALFA

REACTIONS (9)
  - Wheezing [Recovering/Resolving]
  - Cough [Not Recovered/Not Resolved]
  - Insomnia [Not Recovered/Not Resolved]
  - Muscle spasms [Not Recovered/Not Resolved]
  - Laceration [Unknown]
  - Haemorrhagic diathesis [Unknown]
  - Blood pressure increased [Not Recovered/Not Resolved]
  - Skin atrophy [Recovering/Resolving]
  - Asthma [Not Recovered/Not Resolved]

NARRATIVE: CASE EVENT DATE: 201507
